FAERS Safety Report 24379290 (Version 1)
Quarter: 2024Q3

REPORT INFORMATION
  Report Type: Spontaneous
  Country: AR (occurrence: AR)
  Receive Date: 20240930
  Receipt Date: 20240930
  Transmission Date: 20241017
  Serious: Yes (Hospitalization, Other)
  Sender: SANDOZ
  Company Number: AR-SANDOZ-SDZ2024AR083647

PATIENT
  Age: 9 Year
  Sex: Female

DRUGS (2)
  1. OMNITROPE [Suspect]
     Active Substance: SOMATROPIN
     Indication: Growth hormone deficiency
     Dosage: 1.65 MG, 7 DAYS A WEEK
     Route: 058
     Dates: start: 20190501
  2. OMNITROPE [Suspect]
     Active Substance: SOMATROPIN
     Indication: Growth retardation

REACTIONS (2)
  - Renal transplant [Unknown]
  - Seizure [Unknown]

NARRATIVE: CASE EVENT DATE: 20190609
